FAERS Safety Report 6060997-3 (Version None)
Quarter: 2009Q1

REPORT INFORMATION
  Report Type: 
  Country: None (occurrence: None)
  Receive Date: 20090202
  Receipt Date: 20090122
  Transmission Date: 20090719
  Serious: No
  Sender: FDA-Public Use
  Company Number: US-JNJFOC-20090106389

PATIENT
  Sex: Male
  Weight: 106.6 kg

DRUGS (3)
  1. DURAGESIC-100 [Suspect]
     Indication: BACK PAIN
     Route: 062
  2. VICODIN [Concomitant]
     Indication: PAIN
     Route: 048
  3. VALIUM [Concomitant]
     Indication: ANXIETY
     Route: 048

REACTIONS (2)
  - DRUG ADMINISTRATION ERROR [None]
  - DRUG INEFFECTIVE [None]
